FAERS Safety Report 6492009-1 (Version None)
Quarter: 2009Q4

REPORT INFORMATION
  Report Type: 
  Country: None (occurrence: None)
  Receive Date: 20091208
  Receipt Date: 20091126
  Transmission Date: 20100525
  Serious: Yes (Other)
  Sender: FDA-Public Use
  Company Number: 2009AP004836

PATIENT
  Age: 59 Year
  Sex: Male

DRUGS (13)
  1. CITALOPRAM HYDROBROMIDE [Suspect]
     Indication: ANTIDEPRESSANT THERAPY
     Dosage: 20 MG; PO
     Route: 048
  2. ASPIRIN [Concomitant]
  3. ATENOLOL [Concomitant]
  4. BETAMETHASONE VALERATE [Concomitant]
  5. CLIOQUINOL (CLIOQUINOL) [Concomitant]
  6. COAL TAR (COAL TAR) [Concomitant]
  7. CALCIPOTRIOL (CALCIPOTRIOL) [Concomitant]
  8. PARAFFIN, LIQUID (PARAFFIN), LIQUID) [Concomitant]
  9. PARAFFIN SOFT (PARAFFIN SOFT) [Concomitant]
  10. FUROSEMIDE [Concomitant]
  11. LOSARTAN (LOSARTAN) [Concomitant]
  12. SIMVASTATIN [Concomitant]
  13. BETAMETHASONE DIPROPIONATE (BETAMETHASONE DIPROPIONATE) [Concomitant]

REACTIONS (1)
  - DEAFNESS [None]
